FAERS Safety Report 4463973-7 (Version None)
Quarter: 2004Q3

REPORT INFORMATION
  Report Type: 
  Country: None (occurrence: None)
  Receive Date: 20040929
  Receipt Date: 20040916
  Transmission Date: 20050211
  Serious: Yes (Hospitalization)
  Sender: FDA-Public Use
  Company Number: 2004033582

PATIENT
  Age: 47 Year
  Sex: Male

DRUGS (1)
  1. VORICONAZOLE (VORICONAZOLE) [Suspect]
     Indication: BRONCHOPULMONARY ASPERGILLOSIS
     Dosage: 400 MG (200 MG , 2 IN 1 D), ORAL
     Route: 048
     Dates: start: 19931101, end: 19940101

REACTIONS (7)
  - CELLULITIS [None]
  - CERUMEN IMPACTION [None]
  - CHEILITIS [None]
  - ERYTHEMA [None]
  - LIP DRY [None]
  - SKIN DISCOMFORT [None]
  - SKIN TIGHTNESS [None]
